FAERS Safety Report 13592070 (Version 1)
Quarter: 2017Q2

REPORT INFORMATION
  Report Type: Spontaneous
  Country: RU (occurrence: RU)
  Receive Date: 20170530
  Receipt Date: 20170530
  Transmission Date: 20170830
  Serious: Yes (Death)
  Sender: FDA-Public Use
  Company Number: RU-SA-2017SA094832

PATIENT
  Age: 35 Year
  Sex: Female

DRUGS (1)
  1. FABRAZYME [Suspect]
     Active Substance: AGALSIDASE BETA
     Indication: FABRY^S DISEASE
     Route: 042
     Dates: start: 20151022, end: 20170502

REACTIONS (8)
  - Small intestine ulcer [Fatal]
  - Abdominal pain upper [Fatal]
  - Peritonitis [Fatal]
  - Intestinal anastomosis complication [Fatal]
  - Anaemia [Fatal]
  - Haematochezia [Fatal]
  - Multiple organ dysfunction syndrome [Fatal]
  - Intestinal haemorrhage [Fatal]

NARRATIVE: CASE EVENT DATE: 201705
